FAERS Safety Report 8988665 (Version 2)
Quarter: 2013Q2

REPORT INFORMATION
  Report Type: Spontaneous
  Country: US (occurrence: US)
  Receive Date: 20121227
  Receipt Date: 20130416
  Transmission Date: 20140414
  Serious: Yes (Other)
  Sender: FDA-Public Use
  Company Number: US-BAYER-2012-133469

PATIENT
  Sex: Male

DRUGS (2)
  1. STIVARGA [Suspect]
     Indication: COLORECTAL CANCER
     Dosage: 160 MG, QD, FOR 21 DAYS
     Route: 048
     Dates: start: 20121203
  2. DECADRON [Concomitant]

REACTIONS (2)
  - Brain oedema [None]
  - Neurological decompensation [None]
